FAERS Safety Report 6207214-9 (Version None)
Quarter: 2009Q2

REPORT INFORMATION
  Report Type: 
  Country: None (occurrence: None)
  Receive Date: 20090522
  Receipt Date: 20090413
  Transmission Date: 20091009
  Serious: Yes (Hospitalization)
  Sender: FDA-Public Use
  Company Number: 8044740

PATIENT
  Age: 20 Year
  Sex: Male

DRUGS (1)
  1. CIMZIA [Suspect]

REACTIONS (2)
  - PYREXIA [None]
  - VIRAL INFECTION [None]
